FAERS Safety Report 19905161 (Version 1)
Quarter: 2021Q3

REPORT INFORMATION
  Report Type: Spontaneous
  Country: US (occurrence: US)
  Receive Date: 20210930
  Receipt Date: 20210930
  Transmission Date: 20211014
  Serious: No
  Sender: FDA-Public Use
  Company Number: None

PATIENT
  Age: 45 Year
  Sex: Female
  Weight: 58.05 kg

DRUGS (1)
  1. MONSELS SOLUTION [Suspect]
     Active Substance: FERRIC SUBSULFATE
     Indication: COLPOSCOPY

REACTIONS (4)
  - Post procedural complication [None]
  - Procedural pain [None]
  - Gait disturbance [None]
  - Application site pain [None]

NARRATIVE: CASE EVENT DATE: 20210930
